FAERS Safety Report 14444315 (Version 2)
Quarter: 2018Q1

REPORT INFORMATION
  Report Type: Report from Study
  Country: None (occurrence: CO)
  Receive Date: 20180125
  Receipt Date: 20180223
  Transmission Date: 20180509
  Serious: Yes (Other)
  Sender: FDA-Public Use
  Company Number: CO-ABBVIE-18K-036-2234828-00

PATIENT
  Age: 63 Year
  Sex: Female

DRUGS (1)
  1. HUMIRA [Suspect]
     Active Substance: ADALIMUMAB
     Indication: CROHN^S DISEASE
     Route: 058
     Dates: start: 20150520, end: 20180110

REACTIONS (7)
  - Fall [Recovering/Resolving]
  - Osteoarthritis [Recovering/Resolving]
  - Radius fracture [Recovering/Resolving]
  - Nasal dryness [Recovering/Resolving]
  - Dry mouth [Recovering/Resolving]
  - Constipation [Unknown]
  - Facial bones fracture [Recovering/Resolving]

NARRATIVE: CASE EVENT DATE: 2017
